FAERS Safety Report 9985186 (Version 1)
Quarter: 2014Q1

REPORT INFORMATION
  Report Type: Report from Study
  Country: US (occurrence: US)
  Receive Date: 20140307
  Receipt Date: 20140307
  Transmission Date: 20141002
  Serious: No
  Sender: FDA-Public Use
  Company Number: US-ABBVIE-13P-163-1184963-00

PATIENT
  Age: 70 Year
  Sex: Female

DRUGS (16)
  1. HUMIRA [Suspect]
     Indication: CROHN^S DISEASE
     Route: 058
     Dates: start: 20131223, end: 20131223
  2. HUMIRA [Suspect]
  3. ABILIFY [Concomitant]
     Indication: DEPRESSION
  4. MEDIPROCT [Concomitant]
     Indication: PRODUCT USED FOR UNKNOWN INDICATION
  5. ATORVASTATIN [Concomitant]
     Indication: HYPERCHOLESTEROLAEMIA
     Dosage: AT BEDTIME
  6. HYDROCHLOROTHIAZIDE [Concomitant]
     Indication: HYPERTENSION
  7. LOSARTAN [Concomitant]
     Indication: HYPERTENSION
  8. POTASSIUM [Concomitant]
     Indication: PRODUCT USED FOR UNKNOWN INDICATION
  9. ZANTAC [Concomitant]
     Indication: PRODUCT USED FOR UNKNOWN INDICATION
  10. DICYCLOMINE [Concomitant]
     Indication: PRODUCT USED FOR UNKNOWN INDICATION
     Dosage: EVERY 4 - 6 HOURS
  11. TIZANIDINE [Concomitant]
     Indication: PRODUCT USED FOR UNKNOWN INDICATION
  12. PROMETHAZINE [Concomitant]
     Indication: NAUSEA
  13. GLIMEPIRIDE [Concomitant]
     Indication: DIABETES MELLITUS
  14. ZOLOFT [Concomitant]
     Indication: DEPRESSION
     Route: 048
  15. OXYCONTIN [Concomitant]
     Indication: PAIN
     Route: 048
  16. OXYCODONE [Concomitant]
     Indication: PAIN

REACTIONS (1)
  - Injection site haemorrhage [Recovered/Resolved]
